FAERS Safety Report 6112418-X (Version None)
Quarter: 2009Q1

REPORT INFORMATION
  Report Type: 
  Country: None (occurrence: None)
  Receive Date: 20090312
  Receipt Date: 20090303
  Transmission Date: 20090719
  Serious: Yes (Other)
  Sender: FDA-Public Use
  Company Number: PHHY2009BR07885

PATIENT
  Sex: Female
  Weight: 52 kg

DRUGS (3)
  1. TEGRETOL [Suspect]
     Dosage: 200 MG, UNK
     Route: 048
  2. YASMIN [Concomitant]
     Indication: CONTRACEPTION
     Dosage: 1 TABLET DAILY
     Route: 048
  3. ENDOFOLIN [Concomitant]
     Indication: FOLATE DEFICIENCY
     Dosage: 2 MG, QD
     Route: 048
     Dates: start: 20090116

REACTIONS (7)
  - ABDOMINAL DISCOMFORT [None]
  - DYSGEUSIA [None]
  - IRRITABILITY [None]
  - PALATAL DISORDER [None]
  - SOMNOLENCE [None]
  - STRESS [None]
  - THROAT IRRITATION [None]
